FAERS Safety Report 20571995 (Version 1)
Quarter: 2022Q1

REPORT INFORMATION
  Report Type: Spontaneous
  Country: US (occurrence: None)
  Receive Date: 20220308
  Receipt Date: 20220308
  Transmission Date: 20220423
  Serious: Yes (Hospitalization)
  Sender: FDA-Public Use
  Company Number: None

PATIENT
  Age: 77 Year
  Sex: Male
  Weight: 59.87 kg

DRUGS (1)
  1. PROMACTA [Suspect]
     Active Substance: ELTROMBOPAG OLAMINE
     Indication: Product used for unknown indication
     Dosage: FREQUENCY : DAILY;?
     Route: 048

REACTIONS (7)
  - Asthenia [None]
  - Pallor [None]
  - Abnormal behaviour [None]
  - Haemoglobin decreased [None]
  - Platelet count decreased [None]
  - Oxygen saturation decreased [None]
  - Vision blurred [None]

NARRATIVE: CASE EVENT DATE: 20220307
